FAERS Safety Report 7892554-8 (Version None)
Quarter: 2011Q4

REPORT INFORMATION
  Report Type: 
  Country: None (occurrence: None)
  Receive Date: 20111104
  Receipt Date: 20111024
  Transmission Date: 20120403
  Serious: Yes (Death, Life-Threatening, Hospitalization)
  Sender: FDA-Public Use
  Company Number: JP-EISAI INC-E7389-01537-SPO-JP

PATIENT
  Sex: Female
  Weight: 62 kg

DRUGS (21)
  1. HALAVEN [Suspect]
     Indication: METASTASES TO BONE
  2. LASIX [Concomitant]
     Route: 041
  3. HALAVEN [Suspect]
     Indication: METASTASES TO LYMPH NODES
  4. HALAVEN [Suspect]
     Indication: METASTASES TO LUNG
  5. PROHEPARUM [Concomitant]
     Route: 048
  6. OXYCONTIN [Concomitant]
     Route: 048
  7. CELECOXIB [Concomitant]
     Route: 048
  8. NEOSTELIN GREEN [Concomitant]
  9. MAGMITT [Concomitant]
     Route: 048
  10. LEUCON [Concomitant]
     Route: 048
  11. KYTRIL [Concomitant]
     Route: 048
  12. ELCITONIN [Concomitant]
     Route: 041
  13. HALAVEN [Suspect]
     Indication: BREAST CANCER
     Route: 041
     Dates: start: 20110804, end: 20110825
  14. CEPHARANTHINE [Concomitant]
     Route: 048
  15. OMEPRAZOLE [Concomitant]
     Route: 048
  16. POSTERISAN [Concomitant]
  17. ZOMETA [Concomitant]
     Route: 041
  18. SELBEX [Concomitant]
     Route: 048
  19. OXINORM [Concomitant]
     Route: 048
  20. CEFEPIME DIHYDROCHLORIDE HYDRATE [Concomitant]
  21. PREDNISOLONE [Concomitant]
     Route: 041

REACTIONS (3)
  - INTERSTITIAL LUNG DISEASE [None]
  - LEUKOPENIA [None]
  - THROMBOCYTOPENIA [None]
